FAERS Safety Report 8612945 (Version 2)
Quarter: 2012Q4

REPORT INFORMATION
  Report Type: 
  Country: US (occurrence: US)
  Receive Date: 20120613
  Receipt Date: 20120911
  Transmission Date: 20130627
  Serious: Yes (Hospitalization)
  Sender: FDA-Public Use
  Company Number: US-INCYTE CORPORATION-2012IN000989

PATIENT
  Age: 85 Year
  Sex: Male
  Weight: 73.02 kg

DRUGS (12)
  1. JAKAFI [Suspect]
     Indication: MYELOFIBROSIS
     Dosage: 15 mg, bid
     Route: 048
     Dates: start: 201206
  2. LOPRESSOR [Concomitant]
  3. FERROUS SULFATE [Concomitant]
     Indication: MINERAL SUPPLEMENTATION
  4. FLOMAX [Concomitant]
  5. COLACE [Concomitant]
  6. ATIVAN [Concomitant]
  7. PROSCAR [Concomitant]
  8. TYLENOL [Concomitant]
  9. IMDUR [Concomitant]
  10. NORVASC [Concomitant]
  11. OMEPRAZOLE [Concomitant]
  12. TAMSULOSIN [Concomitant]

REACTIONS (1)
  - Nephrolithiasis [Recovered/Resolved]
